FAERS Safety Report 20319485 (Version 1)
Quarter: 2022Q1

REPORT INFORMATION
  Report Type: Spontaneous
  Country: US (occurrence: US)
  Receive Date: 20220110
  Receipt Date: 20220110
  Transmission Date: 20220424
  Serious: Yes (Other)
  Sender: FDA-Public Use
  Company Number: US-BEH-2022140240

PATIENT
  Sex: Female

DRUGS (2)
  1. HIZENTRA [Suspect]
     Active Substance: HUMAN IMMUNOGLOBULIN G
     Indication: Lennox-Gastaut syndrome
     Dosage: 8 GRAM, QW
     Route: 058
     Dates: start: 201911
  2. HIZENTRA [Suspect]
     Active Substance: HUMAN IMMUNOGLOBULIN G
     Indication: Epilepsy

REACTIONS (4)
  - Cerebrovascular accident [Unknown]
  - No adverse event [Unknown]
  - Off label use [Unknown]
  - Cortical visual impairment [Unknown]
